FAERS Safety Report 18080793 (Version 1)
Quarter: 2020Q3

REPORT INFORMATION
  Report Type: Spontaneous
  Country: FR (occurrence: FR)
  Receive Date: 20200728
  Receipt Date: 20200728
  Transmission Date: 20201103
  Serious: Yes (Death)
  Sender: FDA-Public Use
  Company Number: FR-MYLANLABS-2020M1067102

PATIENT
  Age: 50 Year
  Sex: Male
  Weight: 73 kg

DRUGS (11)
  1. ETOPOSIDE. [Suspect]
     Active Substance: ETOPOSIDE
     Indication: HODGKIN^S DISEASE
     Dosage: 192 MILLIGRAM, QD
     Route: 042
     Dates: start: 20200108, end: 20200111
  2. TAZOCILLINE [Suspect]
     Active Substance: PIPERACILLIN SODIUM\TAZOBACTAM SODIUM
     Indication: INFECTION
     Dosage: NON RENSEIGNEE
     Route: 042
     Dates: start: 20200109, end: 20200113
  3. BUSULFAN. [Suspect]
     Active Substance: BUSULFAN
     Indication: HODGKIN^S DISEASE
     Dosage: 234 MILLIGRAM, QD
     Route: 042
     Dates: start: 20200116, end: 20200117
  4. CYCLOPHOSPHAMIDE. [Suspect]
     Active Substance: CYCLOPHOSPHAMIDE
     Indication: HODGKIN^S DISEASE
     Dosage: 762.5 MILLIGRAM, QD
     Route: 042
     Dates: start: 20200108, end: 20200111
  5. IMIPENEM [Concomitant]
     Active Substance: IMIPENEM
     Indication: INFECTION
     Dosage: NON RENSEIGN?E
     Route: 042
     Dates: start: 20200114
  6. TEICOPLANINE [Concomitant]
     Active Substance: TEICOPLANIN
     Indication: INFECTION
     Dosage: NON RENSEIGN?E
     Dates: start: 20200113
  7. FLEBOGAMMA DIF [Suspect]
     Active Substance: HUMAN IMMUNOGLOBULIN G
     Indication: IMMUNODEFICIENCY
     Dosage: NON RENSEIGN?E
     Dates: start: 20200113, end: 20200113
  8. FLUDARABINE                        /01004602/ [Suspect]
     Active Substance: FLUDARABINE PHOSPHATE
     Indication: HODGKIN^S DISEASE
     Dosage: 57.5 MILLIGRAM, QD
     Route: 042
     Dates: start: 20200115, end: 20200119
  9. MESNA. [Concomitant]
     Active Substance: MESNA
     Indication: PROPHYLAXIS
     Dosage: 870 MILLIGRAM, QD
     Dates: start: 20200108, end: 20200111
  10. DEFITELIO [Concomitant]
     Active Substance: DEFIBROTIDE SODIUM
     Indication: PROPHYLAXIS
     Dosage: NON RENSEIGN?E
     Dates: start: 20200117
  11. CASPOFUNGINE [Concomitant]
     Active Substance: CASPOFUNGIN
     Indication: INFECTION
     Dosage: NON RENSEIGN?E
     Route: 042
     Dates: start: 20200113

REACTIONS (1)
  - Venoocclusive disease [Fatal]

NARRATIVE: CASE EVENT DATE: 20200120
